FAERS Safety Report 5648517-6 (Version None)
Quarter: 2008Q1

REPORT INFORMATION
  Report Type: 
  Country: None (occurrence: None)
  Receive Date: 20080304
  Receipt Date: 20080227
  Transmission Date: 20080703
  Serious: Yes (Life-Threatening, Hospitalization)
  Sender: FDA-Public Use
  Company Number: PHEH2008US00850

PATIENT
  Age: 70 Year
  Sex: Female
  Weight: 70.748 kg

DRUGS (1)
  1. RECLAST [Suspect]
     Indication: OSTEOPOROSIS
     Dosage: 5 MG, ONCE YEARLY
     Dates: start: 20080114

REACTIONS (3)
  - CHEST PAIN [None]
  - HYPOXIA [None]
  - MUSCULOSKELETAL CHEST PAIN [None]
